FAERS Safety Report 10921577 (Version 1)
Quarter: 2015Q1

REPORT INFORMATION
  Report Type: Spontaneous
  Country: US (occurrence: None)
  Receive Date: 20150313
  Receipt Date: 20150313
  Transmission Date: 20150721
  Serious: No
  Sender: FDA-Public Use
  Company Number: None

PATIENT
  Age: 32 Year
  Sex: Male
  Weight: 113 kg

DRUGS (16)
  1. DIPRIVAN [Suspect]
     Active Substance: PROPOFOL
     Indication: AGITATION
     Dosage: MCG/KG/MIN AS DESCRIBED BEFORE ONGOING INFUSION INTRAVENOUS
     Route: 042
     Dates: start: 20150310, end: 20150311
  2. FOLIC ACID. [Concomitant]
     Active Substance: FOLIC ACID
  3. PANTOPRAZOLE [Concomitant]
     Active Substance: PANTOPRAZOLE SODIUM
  4. MORPHINE [Concomitant]
     Active Substance: MORPHINE
  5. LORAZEPAM. [Concomitant]
     Active Substance: LORAZEPAM
  6. DIPRIVAN [Suspect]
     Active Substance: PROPOFOL
     Indication: DELIRIUM TREMENS
     Dosage: MCG/KG/MIN AS DESCRIBED BEFORE ONGOING INFUSION INTRAVENOUS
     Route: 042
     Dates: start: 20150310, end: 20150311
  7. ALBUTEROL. [Concomitant]
     Active Substance: ALBUTEROL
  8. ENOXAPARIN [Concomitant]
     Active Substance: ENOXAPARIN
  9. CHLORHEXIDINE [Concomitant]
     Active Substance: CHLORHEXIDINE
  10. MULTIPLE VITAMIN [Concomitant]
     Active Substance: VITAMINS
  11. RCOURONIUM [Concomitant]
  12. NICOTINE TRANSDERMAL SYSTEM [Concomitant]
     Active Substance: NICOTINE
  13. POTASSIUM CHLORIDE. [Concomitant]
     Active Substance: POTASSIUM CHLORIDE
  14. PROPRANOLOL [Concomitant]
     Active Substance: PROPRANOLOL\PROPRANOLOL HYDROCHLORIDE
  15. DIPRIVAN [Suspect]
     Active Substance: PROPOFOL
     Dosage: MCG/KG/MIN AS DESCRIBED BEFORE ONGOING INFUSION INTRAVENOUS
     Route: 042
     Dates: start: 20150310, end: 20150311
  16. THIAMINE [Concomitant]
     Active Substance: THIAMINE

REACTIONS (1)
  - Propofol infusion syndrome [None]

NARRATIVE: CASE EVENT DATE: 20150311
